FAERS Safety Report 7170402-1 (Version None)
Quarter: 2010Q4

REPORT INFORMATION
  Report Type: 
  Country: None (occurrence: None)
  Receive Date: 20101217
  Receipt Date: 20101206
  Transmission Date: 20110411
  Serious: No
  Sender: FDA-Public Use
  Company Number: US-PFIZER INC-2010167211

PATIENT
  Age: 52 Year
  Sex: Female
  Weight: 52.154 kg

DRUGS (3)
  1. ADVIL [Suspect]
     Indication: INFLAMMATION
     Dosage: 1-2 TABLETS, EVERY 4-6 HRS
     Route: 048
     Dates: start: 20101103, end: 20101105
  2. SYNTHROID [Concomitant]
     Indication: THYROID DISORDER
  3. ALBUTEROL [Concomitant]
     Dosage: UNK

REACTIONS (1)
  - ABDOMINAL DISCOMFORT [None]
